FAERS Safety Report 6357671-2 (Version None)
Quarter: 2009Q3

REPORT INFORMATION
  Report Type: 
  Country: None (occurrence: None)
  Receive Date: 20090916
  Receipt Date: 20090907
  Transmission Date: 20100115
  Serious: Yes (Hospitalization)
  Sender: FDA-Public Use
  Company Number: JP-BRISTOL-MYERS SQUIBB COMPANY-14774533

PATIENT
  Age: 41 Year
  Weight: 51 kg

DRUGS (10)
  1. BRIPLATIN INJ [Suspect]
     Indication: CERVIX CARCINOMA RECURRENT
     Dosage: CYCLE 1: 15JUN09-15JUN09 (80MG) CYCLE 2: 10AUG09-10AUG09 (80MG)
     Route: 042
     Dates: start: 20090615, end: 20090810
  2. S-1 [Suspect]
     Indication: CERVIX CARCINOMA RECURRENT
     Dosage: CYCLE 1: 15JUN09-28JUN09 (100MG BID) CYCLE 3: 10AUG09-23JUN09 (120MG BID)
     Route: 048
     Dates: start: 20090615, end: 20090823
  3. CHLOMY-P [Concomitant]
     Indication: VAGINAL DISCHARGE
     Dosage: INTRAVAGINAL
     Route: 067
     Dates: start: 20090629
  4. FLAGYL [Concomitant]
     Indication: VAGINAL DISCHARGE
     Dosage: INTRAVAGINAL
     Dates: start: 20090629
  5. PRIMPERAN [Concomitant]
     Indication: NAUSEA
     Route: 048
     Dates: start: 20090622
  6. RED BLOOD CELLS [Concomitant]
     Indication: HAEMOGLOBIN
     Dosage: FREQ:TWICE
     Route: 041
     Dates: start: 20090827, end: 20090831
  7. AZUNOL [Concomitant]
     Indication: STOMATITIS
     Dosage: AZUNOL GARGLE
     Route: 048
     Dates: start: 20090817, end: 20090828
  8. GASLON N [Concomitant]
     Indication: STOMATITIS
     Dosage: GASLON N-OD
     Route: 048
     Dates: start: 20090730
  9. GASLON N [Concomitant]
     Indication: CHEILITIS
     Dosage: GASLON N-OD
     Route: 048
     Dates: start: 20090730
  10. APHTASOLON [Concomitant]
     Indication: STOMATITIS
     Route: 048
     Dates: start: 20090817, end: 20090828

REACTIONS (1)
  - LEUKOENCEPHALOPATHY [None]
